FAERS Safety Report 19103915 (Version 2)
Quarter: 2021Q2

REPORT INFORMATION
  Report Type: Spontaneous
  Country: US (occurrence: US)
  Receive Date: 20210407
  Receipt Date: 20210422
  Transmission Date: 20210717
  Serious: No
  Sender: FDA-Public Use
  Company Number: US-ASTRAZENECA-2021A131844

PATIENT
  Age: 2999 Week
  Sex: Female
  Weight: 125.6 kg

DRUGS (2)
  1. SYMBICORT [Suspect]
     Active Substance: BUDESONIDE\FORMOTEROL FUMARATE DIHYDRATE
     Indication: ASTHMA
     Dosage: 160 4.5 MCG 120 INHALATIONS, TWO TIMES A DAY
     Route: 055
  2. SYMBICORT [Suspect]
     Active Substance: BUDESONIDE\FORMOTEROL FUMARATE DIHYDRATE
     Indication: CHRONIC OBSTRUCTIVE PULMONARY DISEASE
     Dosage: 160 4.5 MCG 120 INHALATIONS, TWO TIMES A DAY
     Route: 055

REACTIONS (6)
  - Device failure [Unknown]
  - Intentional device misuse [Not Recovered/Not Resolved]
  - Pharyngitis [Recovered/Resolved]
  - Device malfunction [Unknown]
  - Drug dose omission by device [Unknown]
  - Product taste abnormal [Recovered/Resolved]

NARRATIVE: CASE EVENT DATE: 20210307
